FAERS Safety Report 16377688 (Version 1)
Quarter: 2019Q2

REPORT INFORMATION
  Report Type: Spontaneous
  Country: US (occurrence: US)
  Receive Date: 20190531
  Receipt Date: 20190531
  Transmission Date: 20190711
  Serious: Yes (Other)
  Sender: FDA-Public Use
  Company Number: PHEH2019US022452

PATIENT
  Age: 68 Year
  Sex: Female
  Weight: 113.38 kg

DRUGS (2)
  1. SANDOSTATIN LAR DEPOT [Suspect]
     Active Substance: OCTREOTIDE ACETATE
     Indication: NEUROENDOCRINE CARCINOMA
     Dosage: 1 DF, QMO
     Route: 065
  2. OCTREOTIDE. [Suspect]
     Active Substance: OCTREOTIDE
     Indication: NEUROENDOCRINE CARCINOMA
     Dosage: 1 DF, TID
     Route: 058

REACTIONS (3)
  - Neuropathy peripheral [Unknown]
  - Diabetes mellitus [Unknown]
  - Body height decreased [Unknown]

NARRATIVE: CASE EVENT DATE: 201801
